FAERS Safety Report 5231773-6 (Version None)
Quarter: 2007Q1

REPORT INFORMATION
  Report Type: 
  Country: None (occurrence: None)
  Receive Date: 20070206
  Receipt Date: 20070129
  Transmission Date: 20070707
  Serious: Yes (Other)
  Sender: FDA-Public Use
  Company Number: US-PFIZER INC-2006152401

PATIENT
  Sex: Female
  Weight: 80.7 kg

DRUGS (6)
  1. LYRICA [Suspect]
     Indication: NEURALGIA
     Route: 048
     Dates: start: 20061121, end: 20061203
  2. LYRICA [Suspect]
     Indication: PAIN MANAGEMENT
  3. LISINOPRIL [Concomitant]
  4. VICODIN ES [Concomitant]
  5. ASPIRIN [Concomitant]
  6. CALCIUM WITH VITAMIN D [Concomitant]

REACTIONS (3)
  - OEDEMA [None]
  - PHARYNGEAL OEDEMA [None]
  - STEVENS-JOHNSON SYNDROME [None]
